FAERS Safety Report 5671889-3 (Version None)
Quarter: 2008Q1

REPORT INFORMATION
  Report Type: 
  Country: None (occurrence: None)
  Receive Date: 20080317
  Receipt Date: 20080317
  Transmission Date: 20080703
  Serious: Yes (Other)
  Sender: FDA-Public Use
  Company Number: None

PATIENT
  Age: 40 Year
  Sex: Female
  Weight: 83.9154 kg

DRUGS (5)
  1. ABILIFY [Suspect]
     Indication: SCHIZOAFFECTIVE DISORDER
     Dosage: 30MG 1/DAY PO
     Route: 048
     Dates: start: 20071015, end: 20080315
  2. ZOLOFT [Concomitant]
  3. BENADRYL [Concomitant]
  4. ZYRTEC [Concomitant]
  5. NASONOEX [Concomitant]

REACTIONS (1)
  - WEIGHT INCREASED [None]
